FAERS Safety Report 11619619 (Version 1)
Quarter: 2015Q4

REPORT INFORMATION
  Report Type: Other
  Country: IL (occurrence: IL)
  Receive Date: 20151012
  Receipt Date: 20151012
  Transmission Date: 20160304
  Serious: Yes (Other)
  Sender: FDA-Public Use
  Company Number: IL-COR_00408_2015

PATIENT
  Age: 43 Year
  Sex: Female

DRUGS (16)
  1. DOXORUBICIN [Suspect]
     Active Substance: DOXORUBICIN
     Indication: PRIMITIVE NEUROECTODERMAL TUMOUR
     Dosage: FIRST CYCLE, 20 MG/M2 ON DAYS 1 TO 3
     Route: 042
  2. DOXORUBICIN [Suspect]
     Active Substance: DOXORUBICIN
     Indication: METASTASES TO ABDOMINAL WALL
     Dosage: SECOND CYCLE, REDUCED DOSE
     Route: 042
  3. ETOPOSIDE. [Suspect]
     Active Substance: ETOPOSIDE
     Indication: METASTASES TO LIVER
     Dosage: SECOND CYCLE, REDUCED DOSE
     Route: 042
  4. DOXORUBICIN [Suspect]
     Active Substance: DOXORUBICIN
     Indication: METASTASES TO LUNG
     Dosage: FIRST CYCLE, 20 MG/M2 ON DAYS 1 TO 3
     Route: 042
  5. DOXORUBICIN [Suspect]
     Active Substance: DOXORUBICIN
     Indication: METASTASES TO LIVER
     Dosage: FIRST CYCLE, 20 MG/M2 ON DAYS 1 TO 3
     Route: 042
  6. IFOSFAMIDE WITH MESNA [Suspect]
     Active Substance: IFOSFAMIDE\MESNA
     Indication: PRIMITIVE NEUROECTODERMAL TUMOUR
     Dosage: FIRST CYCLE, 3 G/M2 ON DAYS 1 TO 3 WITH MESNA EVERY 21 DAYS
     Route: 042
  7. VINCRISTINE [Suspect]
     Active Substance: VINCRISTINE
     Indication: PRIMITIVE NEUROECTODERMAL TUMOUR
     Dosage: FIRST CYCLE, 1.5 MG/M2 ON DAY 1
     Route: 042
  8. ETOPOSIDE. [Suspect]
     Active Substance: ETOPOSIDE
     Indication: PRIMITIVE NEUROECTODERMAL TUMOUR
     Dosage: SECOND CYCLE, REDUCED DOSE
     Route: 042
  9. ETOPOSIDE. [Suspect]
     Active Substance: ETOPOSIDE
     Indication: METASTASES TO ABDOMINAL WALL
     Dosage: FIRST CYCLE, 150 MG/M2 ON DAYS 1 TO 3
     Route: 042
  10. IFOSFAMIDE WITH MESNA [Suspect]
     Active Substance: IFOSFAMIDE\MESNA
     Indication: METASTASES TO LIVER
     Dosage: FIRST CYCLE, 3 G/M2 ON DAYS 1 TO 3 WITH MESNA EVERY 21 DAYS
     Route: 042
  11. IFOSFAMIDE WITH MESNA [Suspect]
     Active Substance: IFOSFAMIDE\MESNA
     Indication: METASTASES TO ABDOMINAL WALL
     Dosage: FIRST CYCLE, 3 G/M2 ON DAYS 1 TO 3 WITH MESNA EVERY 21 DAYS
     Route: 042
  12. VINCRISTINE [Suspect]
     Active Substance: VINCRISTINE
     Indication: METASTASES TO LIVER
     Dosage: FIRST CYCLE, 1.5 MG/M2 ON DAY 1
     Route: 042
  13. IFOSFAMIDE WITH MESNA [Suspect]
     Active Substance: IFOSFAMIDE\MESNA
     Indication: METASTASES TO LUNG
     Dosage: SECOND CYCLE, REDUCED DOSE
     Route: 042
  14. VINCRISTINE [Suspect]
     Active Substance: VINCRISTINE
     Indication: METASTASES TO ABDOMINAL WALL
     Dosage: SECOND CYCLE, REDUCED DOSE
     Route: 042
  15. VINCRISTINE [Suspect]
     Active Substance: VINCRISTINE
     Indication: METASTASES TO LUNG
     Dosage: FIRST CYCLE, 1.5 MG/M2 ON DAY 1
     Route: 042
  16. ETOPOSIDE. [Suspect]
     Active Substance: ETOPOSIDE
     Indication: METASTASES TO LUNG
     Dosage: SECOND CYCLE, REDUCED DOSE
     Route: 042

REACTIONS (4)
  - Diarrhoea [Recovered/Resolved]
  - Febrile neutropenia [Recovered/Resolved]
  - Encephalopathy [Recovered/Resolved]
  - Acute kidney injury [Recovered/Resolved]
